FAERS Safety Report 9691272 (Version 5)
Quarter: 2014Q4

REPORT INFORMATION
  Report Type: Spontaneous
  Country: US (occurrence: US)
  Receive Date: 20131115
  Receipt Date: 20141022
  Transmission Date: 20150529
  Serious: Yes (Death, Hospitalization, Other)
  Sender: FDA-Public Use
  Company Number: US-009507513-1311USA005847

PATIENT
  Sex: Female
  Weight: 61.22 kg

DRUGS (1)
  1. JANUVIA [Suspect]
     Active Substance: SITAGLIPTIN PHOSPHATE
     Indication: TYPE 2 DIABETES MELLITUS
     Dosage: UNK
     Route: 048
     Dates: start: 201006, end: 20101025

REACTIONS (15)
  - Blood triglycerides increased [Unknown]
  - Renal mass [Unknown]
  - Pancreatic carcinoma metastatic [Fatal]
  - Psoriatic arthropathy [Unknown]
  - Metastases to liver [Fatal]
  - Hypercholesterolaemia [Unknown]
  - Decreased appetite [Unknown]
  - Neuropathy peripheral [Unknown]
  - Hyperparathyroidism [Unknown]
  - Constipation [Unknown]
  - Cardiac arrest [Unknown]
  - Intervertebral disc disorder [Unknown]
  - Microalbuminuria [Unknown]
  - Hypertension [Unknown]
  - Rheumatoid arthritis [Unknown]

NARRATIVE: CASE EVENT DATE: 2010
